FAERS Safety Report 6445424-6 (Version None)
Quarter: 2009Q4

REPORT INFORMATION
  Report Type: 
  Country: None (occurrence: None)
  Receive Date: 20091118
  Receipt Date: 20091112
  Transmission Date: 20100525
  Serious: Yes (Death, Hospitalization, Other)
  Sender: FDA-Public Use
  Company Number: PHHY2009MX20097

PATIENT
  Age: 86 Year
  Sex: Male

DRUGS (1)
  1. DIOVAN [Suspect]
     Indication: HYPERTENSION
     Dosage: 0.5 TAB/ DAY
     Route: 048
     Dates: start: 20050601, end: 20090514

REACTIONS (10)
  - BLADDER CANCER [None]
  - EMBOLISM [None]
  - HYPERTENSION [None]
  - MALIGNANT NEOPLASM PROGRESSION [None]
  - ONCOLOGIC COMPLICATION [None]
  - PROSTATE CANCER [None]
  - PROSTATECTOMY [None]
  - RENAL FAILURE ACUTE [None]
  - RESPIRATORY ARREST [None]
  - TERMINAL STATE [None]
